FAERS Safety Report 15229322 (Version 2)
Quarter: 2018Q3

REPORT INFORMATION
  Report Type: Spontaneous
  Country: US (occurrence: US)
  Receive Date: 20180801
  Receipt Date: 20180829
  Transmission Date: 20181010
  Serious: No
  Sender: FDA-Public Use
  Company Number: US-BIOGEN-2018BI00615427

PATIENT
  Age: 56 Year
  Sex: Female

DRUGS (1)
  1. TYSABRI [Suspect]
     Active Substance: NATALIZUMAB
     Indication: MULTIPLE SCLEROSIS
     Dosage: INFUSED OVER 1 HOUR
     Route: 042
     Dates: start: 20070710, end: 20180618

REACTIONS (5)
  - Memory impairment [Unknown]
  - Skin mass [Unknown]
  - Osteoporosis [Unknown]
  - Blood creatinine abnormal [Unknown]
  - Sunburn [Unknown]

NARRATIVE: CASE EVENT DATE: 20180730
